FAERS Safety Report 21329787 (Version 1)
Quarter: 2022Q3

REPORT INFORMATION
  Report Type: Spontaneous
  Country: GB (occurrence: GB)
  Receive Date: 20220913
  Receipt Date: 20220913
  Transmission Date: 20221026
  Serious: Yes (Other)
  Sender: FDA-Public Use
  Company Number: GB-MHRA-MED-202209021646041870-KMQPS

PATIENT
  Age: 22 Year
  Sex: Female
  Weight: 55 kg

DRUGS (1)
  1. KYLEENA [Suspect]
     Active Substance: LEVONORGESTREL
     Dosage: 17.5?G/DAY
     Route: 015
     Dates: start: 20190910, end: 20220902

REACTIONS (5)
  - Panic attack [Recovering/Resolving]
  - Dysmenorrhoea [Recovering/Resolving]
  - Anxiety [Recovering/Resolving]
  - Growing pains [Recovering/Resolving]
  - Pelvic pain [Recovered/Resolved]

NARRATIVE: CASE EVENT DATE: 20190910
